FAERS Safety Report 8201069-9 (Version None)
Quarter: 2012Q1

REPORT INFORMATION
  Report Type: 
  Country: None (occurrence: None)
  Receive Date: 20120312
  Receipt Date: 20120213
  Transmission Date: 20120608
  Serious: No
  Sender: FDA-Public Use
  Company Number: US-ABBOTT-12P-163-0904178-00

PATIENT
  Sex: Female

DRUGS (1)
  1. LUPRON DEPOT [Suspect]
     Indication: UTERINE LEIOMYOMA
     Dosage: ONCE
     Route: 030
     Dates: start: 20111001, end: 20111001

REACTIONS (3)
  - WEIGHT INCREASED [None]
  - DRUG INEFFECTIVE [None]
  - HOT FLUSH [None]
